FAERS Safety Report 7918292-0 (Version None)
Quarter: 2011Q4

REPORT INFORMATION
  Report Type: 
  Country: None (occurrence: None)
  Receive Date: 20111116
  Receipt Date: 20111110
  Transmission Date: 20120403
  Serious: Yes (Hospitalization)
  Sender: FDA-Public Use
  Company Number: IE-GLAXOSMITHKLINE-B0762915A

PATIENT
  Age: 84 Year
  Sex: Male

DRUGS (2)
  1. DUTASTERIDE/TAMSULOSIN HYDROCHLORIDE [Suspect]
     Indication: BENIGN PROSTATIC HYPERPLASIA
     Dates: start: 20110501
  2. UNKNOWN DRUG [Concomitant]

REACTIONS (2)
  - HYPERTENSION [None]
  - CIRCULATORY COLLAPSE [None]
